FAERS Safety Report 19153491 (Version 2)
Quarter: 2021Q2

REPORT INFORMATION
  Report Type: Report from Study
  Country: MX (occurrence: MX)
  Receive Date: 20210419
  Receipt Date: 20210510
  Transmission Date: 20210717
  Serious: Yes (Life-Threatening, Hospitalization, Other)
  Sender: FDA-Public Use
  Company Number: MX-TAKEDA-MX202007416

PATIENT
  Age: 8 Year
  Sex: Male
  Weight: 22 kg

DRUGS (7)
  1. IDURSULFASE [Suspect]
     Active Substance: IDURSULFASE
     Dosage: 15 MILLIGRAM, 1/WEEK
     Route: 042
     Dates: start: 20150717
  2. MELATONIN [Concomitant]
     Active Substance: MELATONIN
     Indication: PRODUCT USED FOR UNKNOWN INDICATION
     Dosage: 2 DOSAGE FORM, QD
     Route: 065
  3. IDURSULFASE [Suspect]
     Active Substance: IDURSULFASE
     Dosage: UNK
     Route: 042
     Dates: start: 20200211
  4. FLUTICASONE. [Concomitant]
     Active Substance: FLUTICASONE
     Indication: PRODUCT USED FOR UNKNOWN INDICATION
     Dosage: UNK UNK, Q12H
     Route: 065
  5. LACOSAMIDE. [Concomitant]
     Active Substance: LACOSAMIDE
     Indication: PRODUCT USED FOR UNKNOWN INDICATION
     Dosage: 1 DOSAGE FORM, Q12H
     Route: 065
  6. STERIMAR [SEA WATER] [Concomitant]
     Indication: PRODUCT USED FOR UNKNOWN INDICATION
     Dosage: UNK UNK, Q8HR
     Route: 065
  7. IDURSULFASE [Suspect]
     Active Substance: IDURSULFASE
     Indication: MUCOPOLYSACCHARIDOSIS II
     Dosage: 2.5 DOSAGE FORM, 1/WEEK
     Route: 042
     Dates: start: 20150717

REACTIONS (5)
  - Product dose omission issue [Not Recovered/Not Resolved]
  - Post procedural complication [Recovering/Resolving]
  - Product availability issue [Not Recovered/Not Resolved]
  - Pancreatitis [Recovering/Resolving]
  - Gastrostomy [Recovering/Resolving]

NARRATIVE: CASE EVENT DATE: 20200218
